FAERS Safety Report 9124300 (Version 3)
Quarter: 2013Q2

REPORT INFORMATION
  Report Type: Spontaneous
  Country: FR (occurrence: FR)
  Receive Date: 20130227
  Receipt Date: 20130620
  Transmission Date: 20140414
  Serious: No
  Sender: FDA-Public Use
  Company Number: FR-JNJFOC-20130213283

PATIENT
  Age: 39 Year
  Sex: Female
  Weight: 46 kg

DRUGS (2)
  1. STELARA [Suspect]
     Indication: PSORIASIS
     Route: 058
     Dates: start: 20130201
  2. STELARA [Suspect]
     Indication: PSORIASIS
     Route: 058
     Dates: start: 20130104

REACTIONS (6)
  - Hypersensitivity [Recovering/Resolving]
  - Guttate psoriasis [Recovered/Resolved]
  - Anxiety [Unknown]
  - Alopecia [Recovered/Resolved]
  - Eyelid oedema [Recovered/Resolved]
  - Xerosis [Unknown]
